FAERS Safety Report 17787595 (Version 3)
Quarter: 2020Q4

REPORT INFORMATION
  Report Type: Report from Study
  Country: None (occurrence: NL)
  Receive Date: 20200515
  Receipt Date: 20201029
  Transmission Date: 20210113
  Serious: Yes (Other)
  Sender: FDA-Public Use
  Company Number: NL-ABBVIE-20K-114-3402540-00

PATIENT
  Age: 71 Year
  Sex: Male

DRUGS (7)
  1. DUODOPA [Suspect]
     Active Substance: CARBIDOPA\LEVODOPA
  2. MADOPAR DISPERSIBLE [Concomitant]
     Indication: PARKINSON^S DISEASE
     Dosage: AT 03:00 AM
  3. LEVODOPA/CARBIDOPA RETARD [Concomitant]
     Active Substance: CARBIDOPA\LEVODOPA
     Indication: PRODUCT USED FOR UNKNOWN INDICATION
  4. RIVOTRIL [Concomitant]
     Active Substance: CLONAZEPAM
     Indication: PRODUCT USED FOR UNKNOWN INDICATION
     Dosage: AT 9.30 PM
  5. MADOPAR HBS [Concomitant]
     Active Substance: BENSERAZIDE HYDROCHLORIDE\LEVODOPA
     Indication: PRODUCT USED FOR UNKNOWN INDICATION
     Dosage: TWICE AT NIGHT
  6. MACROGOL [Concomitant]
     Active Substance: POLYETHYLENE GLYCOLS
     Indication: ABNORMAL FAECES
  7. DUODOPA [Suspect]
     Active Substance: CARBIDOPA\LEVODOPA
     Indication: PARKINSON^S DISEASE
     Dosage: MD 10.5 CD 4.8 ED 2.7
     Route: 050
     Dates: start: 20160413

REACTIONS (30)
  - Fluid retention [Recovering/Resolving]
  - Disturbance in attention [Unknown]
  - Fall [Not Recovered/Not Resolved]
  - Hypoaesthesia [Not Recovered/Not Resolved]
  - Stoma site erythema [Unknown]
  - Weight decreased [Recovering/Resolving]
  - Delirium [Recovering/Resolving]
  - Taste disorder [Not Recovered/Not Resolved]
  - Restless legs syndrome [Not Recovered/Not Resolved]
  - Jaw fracture [Not Recovered/Not Resolved]
  - Dyskinesia [Not Recovered/Not Resolved]
  - Cardiac disorder [Not Recovered/Not Resolved]
  - Anger [Not Recovered/Not Resolved]
  - COVID-19 [Recovered/Resolved]
  - Judgement impaired [Unknown]
  - Confusional state [Not Recovered/Not Resolved]
  - Pain in extremity [Not Recovered/Not Resolved]
  - Device occlusion [Recovered/Resolved]
  - On and off phenomenon [Unknown]
  - Sitting disability [Not Recovered/Not Resolved]
  - Abnormal faeces [Not Recovered/Not Resolved]
  - Hallucination [Recovering/Resolving]
  - Foot deformity [Not Recovered/Not Resolved]
  - Dystonia [Not Recovered/Not Resolved]
  - Somnolence [Not Recovered/Not Resolved]
  - Cognitive disorder [Not Recovered/Not Resolved]
  - Cardiac failure [Unknown]
  - Memory impairment [Unknown]
  - Motor dysfunction [Not Recovered/Not Resolved]
  - Medical device site dryness [Unknown]

NARRATIVE: CASE EVENT DATE: 2020
